FAERS Safety Report 8801152 (Version 2)
Quarter: 2012Q4

REPORT INFORMATION
  Report Type: 
  Country: FR (occurrence: FR)
  Receive Date: 20120921
  Receipt Date: 20121008
  Transmission Date: 20130627
  Serious: Yes (Hospitalization, Other)
  Sender: FDA-Public Use
  Company Number: PHHY2012FR081406

PATIENT
  Age: 76 Year
  Sex: Male
  Weight: 80 kg

DRUGS (5)
  1. ONBREZ [Suspect]
     Indication: CHRONIC OBSTRUCTIVE PULMONARY DISEASE
     Dosage: UNK
     Dates: start: 20120719, end: 20120826
  2. CRESTOR [Concomitant]
     Dosage: 5 mg, QD
     Route: 048
  3. APROVEL [Concomitant]
     Dosage: 150 mg, QD
     Route: 048
  4. PARIET [Concomitant]
     Dosage: 10 mg, QD
     Route: 048
  5. EFFERALGAN [Concomitant]
     Dosage: 1 g, BID
     Route: 048

REACTIONS (1)
  - Convulsion [Recovered/Resolved]
